FAERS Safety Report 19514803 (Version 1)
Quarter: 2021Q3

REPORT INFORMATION
  Report Type: Other
  Country: TR (occurrence: TR)
  Receive Date: 20210709
  Receipt Date: 20210709
  Transmission Date: 20211014
  Serious: Yes (Hospitalization, Congenital Anomaly, Other)
  Sender: FDA-Public Use
  Company Number: TR-INVATECH-000114

PATIENT
  Age: 5 Day
  Sex: Male
  Weight: 3.25 kg

DRUGS (1)
  1. VALPROIC ACID. [Suspect]
     Active Substance: VALPROIC ACID
     Indication: PRODUCT USED FOR UNKNOWN INDICATION
     Route: 064

REACTIONS (4)
  - Congenital arteriovenous fistula [Recovered/Resolved]
  - Teratogenicity [Unknown]
  - Foetal anticonvulsant syndrome [Recovered/Resolved]
  - Foetal exposure during pregnancy [Unknown]
